FAERS Safety Report 7819244-1 (Version None)
Quarter: 2011Q4

REPORT INFORMATION
  Report Type: 
  Country: None (occurrence: None)
  Receive Date: 20111018
  Receipt Date: 20101026
  Transmission Date: 20120403
  Serious: No
  Sender: FDA-Public Use
  Company Number: US-ASTRAZENECA-2010SE50690

PATIENT
  Age: 43 Year
  Sex: Female
  Weight: 52.6 kg

DRUGS (2)
  1. NEXIUM [Suspect]
     Route: 048
     Dates: start: 20091201
  2. SYMBICORT [Suspect]
     Dosage: 160/4.5 ONE PUFF TWO TIMES A DAY
     Route: 055
     Dates: start: 20091201

REACTIONS (1)
  - OSTEOSIS [None]
